FAERS Safety Report 17900994 (Version 1)
Quarter: 2020Q2

REPORT INFORMATION
  Report Type: Spontaneous
  Country: US (occurrence: US)
  Receive Date: 20200616
  Receipt Date: 20200616
  Transmission Date: 20200714
  Serious: Yes (Other)
  Sender: FDA-Public Use
  Company Number: US-PFIZER INC-2020233417

PATIENT
  Age: 63 Year
  Sex: Male

DRUGS (1)
  1. IBRANCE [Suspect]
     Active Substance: PALBOCICLIB
     Indication: BREAST CANCER MALE
     Dosage: 75 MG, CYCLIC (DAILY 21 DAYS ON THEN 7 DAYS OFF)
     Route: 048
     Dates: start: 202005

REACTIONS (3)
  - Blood count abnormal [Unknown]
  - Epistaxis [Unknown]
  - Diarrhoea haemorrhagic [Unknown]

NARRATIVE: CASE EVENT DATE: 2020
